FAERS Safety Report 5941902-4 (Version None)
Quarter: 2008Q4

REPORT INFORMATION
  Report Type: 
  Country: None (occurrence: None)
  Receive Date: 20081105
  Receipt Date: 20081104
  Transmission Date: 20090506
  Serious: Yes (Other)
  Sender: FDA-Public Use
  Company Number: US-BRISTOL-MYERS SQUIBB COMPANY-14394324

PATIENT
  Age: 73 Year
  Sex: Female

DRUGS (3)
  1. GLUCOPHAGE [Suspect]
  2. NEURONTIN [Suspect]
  3. POTASSIUM CHLORIDE [Suspect]

REACTIONS (1)
  - HYPERTENSION [None]
